FAERS Safety Report 10069400 (Version 1)
Quarter: 2014Q2

REPORT INFORMATION
  Report Type: Spontaneous
  Country: US (occurrence: US)
  Receive Date: 20140410
  Receipt Date: 20140410
  Transmission Date: 20141212
  Serious: No
  Sender: FDA-Public Use
  Company Number: US-009507513-1404USA005012

PATIENT
  Age: 83 Year
  Sex: Female

DRUGS (2)
  1. JANUVIA [Suspect]
     Indication: HYPOCHOLESTEROLAEMIA
     Dosage: 50 MG/ 1 PILL A DAY
     Route: 048
     Dates: start: 20140313, end: 20140403
  2. SIMETHICONE [Concomitant]

REACTIONS (5)
  - Muscle spasms [Recovering/Resolving]
  - Flatulence [Recovering/Resolving]
  - Pruritus [Recovering/Resolving]
  - Pruritus [Recovering/Resolving]
  - Off label use [Recovering/Resolving]
